FAERS Safety Report 8426820-4 (Version None)
Quarter: 2012Q2

REPORT INFORMATION
  Report Type: 
  Country: None (occurrence: None)
  Receive Date: 20120611
  Receipt Date: 20120601
  Transmission Date: 20120825
  Serious: Yes (Hospitalization, Other)
  Sender: FDA-Public Use
  Company Number: US-ABBOTT-12P-163-0941567-00

PATIENT
  Sex: Male
  Weight: 98.518 kg

DRUGS (3)
  1. HUMIRA [Suspect]
     Route: 058
     Dates: start: 20100101, end: 20110201
  2. TOPICAL CREAM [Concomitant]
     Indication: PSORIASIS
  3. HUMIRA [Suspect]
     Indication: PSORIASIS
     Route: 058
     Dates: start: 20120301

REACTIONS (8)
  - WEIGHT DECREASED [None]
  - FATIGUE [None]
  - STAPHYLOCOCCAL INFECTION [None]
  - HYPOAESTHESIA [None]
  - PARAESTHESIA [None]
  - ABSCESS LIMB [None]
  - GAIT DISTURBANCE [None]
  - INFLUENZA LIKE ILLNESS [None]
